FAERS Safety Report 14329604 (Version 2)
Quarter: 2018Q1

REPORT INFORMATION
  Report Type: Spontaneous
  Country: NL (occurrence: NL)
  Receive Date: 20171227
  Receipt Date: 20180118
  Transmission Date: 20180509
  Serious: Yes (Death, Hospitalization)
  Sender: FDA-Public Use
  Company Number: NL-BAXTER-2017BAX043603

PATIENT
  Age: 64 Year
  Sex: Male

DRUGS (10)
  1. ASCORBIC ACID. [Concomitant]
     Active Substance: ASCORBIC ACID
     Indication: PROPHYLAXIS
     Route: 065
  2. GLUCOSE 2.5% [Suspect]
     Active Substance: DEXTROSE
     Indication: INTERNAL HAEMORRHAGE
     Route: 042
  3. NATRIUMCHLORIDE 0.9%, OPLOSSING VOOR INTRAVENEUZE INFUSIE 9 G/L [Suspect]
     Active Substance: SODIUM CHLORIDE
     Indication: INTERNAL HAEMORRHAGE
     Route: 042
  4. VITAMIN B [Concomitant]
     Active Substance: VITAMIN B
     Indication: PROPHYLAXIS
     Route: 065
  5. POTASSIUM CHLORIDE. [Suspect]
     Active Substance: POTASSIUM CHLORIDE
     Indication: INTERNAL HAEMORRHAGE
     Route: 042
  6. SODIUM CHLORIDE 0.45% [Suspect]
     Active Substance: SODIUM CHLORIDE
     Indication: INTERNAL HAEMORRHAGE
     Route: 042
  7. RINGER, OPLOSSING VOOR INFUSIE [Suspect]
     Active Substance: CALCIUM CHLORIDE\POTASSIUM CHLORIDE\SODIUM CHLORIDE\SODIUM LACTATE
     Indication: INTERNAL HAEMORRHAGE
     Route: 042
  8. NATRIUMCHLORIDE 0.9%, OPLOSSING VOOR INTRAVENEUZE INFUSIE 9 G/L [Suspect]
     Active Substance: SODIUM CHLORIDE
     Route: 042
  9. GLUCOSE 5% , OPLOSSING VOOR INTRAVENEUZE INFUSIE 50 G/L [Suspect]
     Active Substance: DEXTROSE
     Indication: INTERNAL HAEMORRHAGE
     Route: 042
  10. THIAMINE. [Concomitant]
     Active Substance: THIAMINE
     Indication: PROPHYLAXIS
     Route: 065

REACTIONS (1)
  - Osmotic demyelination syndrome [Fatal]
